FAERS Safety Report 10381728 (Version 1)
Quarter: 2014Q1

REPORT INFORMATION
  Report Type: Spontaneous
  Country: US (occurrence: None)
  Receive Date: 20140306
  Receipt Date: 20140306
  Transmission Date: 20141002
  Serious: Yes (Other)
  Sender: FDA-Public Use
  Company Number: 163-21880-13090303

PATIENT
  Age: 48 Year
  Sex: Male

DRUGS (5)
  1. REVLIMID [Suspect]
     Indication: 5Q MINUS SYNDROME
     Route: 048
     Dates: start: 20130731, end: 20130822
  2. CARB/LEVO (SINEMET) [Concomitant]
  3. BACLOFEN [Concomitant]
  4. HYDROCHLOROTHIAZIDE [Concomitant]
  5. LEVOTHYROXINE [Concomitant]

REACTIONS (1)
  - Pancytopenia [None]
